FAERS Safety Report 7818713-8 (Version None)
Quarter: 2011Q4

REPORT INFORMATION
  Report Type: 
  Country: None (occurrence: None)
  Receive Date: 20111018
  Receipt Date: 20111011
  Transmission Date: 20120403
  Serious: Yes (Other)
  Sender: FDA-Public Use
  Company Number: US-BIOGENIDEC-2011BI017583

PATIENT
  Sex: Male

DRUGS (1)
  1. TYSABRI [Suspect]
     Indication: MULTIPLE SCLEROSIS
     Route: 042
     Dates: start: 20060814

REACTIONS (5)
  - MALAISE [None]
  - SUICIDE ATTEMPT [None]
  - BIPOLAR DISORDER [None]
  - SUICIDAL IDEATION [None]
  - ARTHRALGIA [None]
